FAERS Safety Report 6302261-0 (Version None)
Quarter: 2009Q3

REPORT INFORMATION
  Report Type: 
  Country: None (occurrence: None)
  Receive Date: 20090810
  Receipt Date: 20090730
  Transmission Date: 20100115
  Serious: Yes (Other)
  Sender: FDA-Public Use
  Company Number: US-RANBAXY-2009US-22087

PATIENT

DRUGS (3)
  1. ISOTRETINOIN [Suspect]
     Indication: DRUG USE FOR UNKNOWN INDICATION
     Dosage: 40 MG, BID
     Route: 048
     Dates: start: 20090117, end: 20090210
  2. ORAL CONTRACEPTIVE PILLS [Concomitant]
     Indication: CONTRACEPTION
  3. MORNING AFTER PILL [Concomitant]
     Indication: CONTRACEPTION
     Dosage: UNK
     Route: 048
     Dates: start: 20090104, end: 20090104

REACTIONS (3)
  - ABORTION SPONTANEOUS [None]
  - DRUG EXPOSURE DURING PREGNANCY [None]
  - VAGINAL HAEMORRHAGE [None]
